FAERS Safety Report 12633540 (Version 2)
Quarter: 2016Q4

REPORT INFORMATION
  Report Type: Spontaneous
  Country: US (occurrence: US)
  Receive Date: 20160809
  Receipt Date: 20161018
  Transmission Date: 20170207
  Serious: No
  Sender: FDA-Public Use
  Company Number: US-BAYER-2016-153781

PATIENT
  Age: 83 Year
  Sex: Male
  Weight: 81.18 kg

DRUGS (7)
  1. MIRALAX [Suspect]
     Active Substance: POLYETHYLENE GLYCOL 3350
     Indication: PROPHYLAXIS
     Dosage: 1 DF, QD
     Route: 048
  2. ESOMEPRAZOLE [Concomitant]
     Active Substance: ESOMEPRAZOLE
  3. POTASSIUM CHLORIDE. [Concomitant]
     Active Substance: POTASSIUM CHLORIDE
     Dosage: 1 DF, BID
  4. MECLIZINE [Concomitant]
     Active Substance: MECLIZINE HYDROCHLORIDE
     Dosage: 1 DF, BID
  5. CAPTOPRIL. [Concomitant]
     Active Substance: CAPTOPRIL
  6. OECOTRIM [Concomitant]
  7. CARVEDILOL. [Concomitant]
     Active Substance: CARVEDILOL
     Dosage: 1 DF, BID

REACTIONS (1)
  - Product use issue [None]
